FAERS Safety Report 15012621 (Version 1)
Quarter: 2018Q2

REPORT INFORMATION
  Report Type: Spontaneous
  Country: US (occurrence: US)
  Receive Date: 20180614
  Receipt Date: 20180614
  Transmission Date: 20180711
  Serious: No
  Sender: FDA-Public Use
  Company Number: US-ELI_LILLY_AND_COMPANY-US201806005184

PATIENT
  Sex: Male

DRUGS (2)
  1. CIALIS [Suspect]
     Active Substance: TADALAFIL
     Indication: URINARY RETENTION
     Dosage: 5 MG, UNKNOWN
     Route: 065
  2. CIALIS [Suspect]
     Active Substance: TADALAFIL
     Dosage: 5 MG, UNKNOWN
     Route: 065

REACTIONS (11)
  - Arthralgia [Recovering/Resolving]
  - Off label use [Unknown]
  - Testicular pain [Recovering/Resolving]
  - Influenza [Recovering/Resolving]
  - Testicular swelling [Recovering/Resolving]
  - Abdominal discomfort [Recovering/Resolving]
  - Dysuria [Recovering/Resolving]
  - Decreased appetite [Unknown]
  - Malaise [Recovering/Resolving]
  - Drug ineffective [Recovering/Resolving]
  - Muscle tightness [Recovering/Resolving]
